FAERS Safety Report 10413227 (Version 2)
Quarter: 2014Q3

REPORT INFORMATION
  Report Type: Report from Study
  Country: CH (occurrence: CH)
  Receive Date: 20140827
  Receipt Date: 20140918
  Transmission Date: 20150326
  Serious: Yes (Hospitalization, Other)
  Sender: FDA-Public Use
  Company Number: CH-JNJFOC-20140822220

PATIENT
  Age: 55 Year
  Sex: Male
  Weight: 96 kg

DRUGS (4)
  1. SIMPONI [Suspect]
     Active Substance: GOLIMUMAB
     Indication: RHEUMATOID ARTHRITIS
     Route: 058
     Dates: start: 20130108, end: 20130607
  2. SIMPONI [Suspect]
     Active Substance: GOLIMUMAB
     Indication: POLYARTHRITIS
     Route: 058
     Dates: start: 20130108, end: 20130607
  3. PANTOPRAZOLE [Concomitant]
     Active Substance: PANTOPRAZOLE SODIUM
     Indication: POLYARTHRITIS
     Route: 048
     Dates: start: 20130108
  4. DICLOFENAC [Concomitant]
     Active Substance: DICLOFENAC
     Indication: POLYARTHRITIS
     Route: 065
     Dates: start: 20130108

REACTIONS (6)
  - Dyspnoea [Recovering/Resolving]
  - Lupus-like syndrome [Recovered/Resolved]
  - Atrial fibrillation [Recovering/Resolving]
  - Pneumonia [Recovering/Resolving]
  - Dizziness [Recovering/Resolving]
  - Arthritis [Recovering/Resolving]

NARRATIVE: CASE EVENT DATE: 201305
